FAERS Safety Report 6876853-4 (Version None)
Quarter: 2010Q3

REPORT INFORMATION
  Report Type: 
  Country: None (occurrence: None)
  Receive Date: 20100727
  Receipt Date: 20100720
  Transmission Date: 20110219
  Serious: Yes (Death)
  Sender: FDA-Public Use
  Company Number: JP-ROCHE-716859

PATIENT
  Sex: Male
  Weight: 70.3 kg

DRUGS (4)
  1. PEGASYS [Suspect]
     Indication: HEPATITIS C
     Dosage: NOTE:90-135 MCG/WEEK.
     Route: 058
     Dates: start: 20081117, end: 20091026
  2. EPOGIN [Concomitant]
     Dosage: NOTE:0-9000 IU/WEEK.DRUG REPORTED:EPOGIN INJ. 9000,12000.
     Route: 042
     Dates: start: 19980508, end: 20091026
  3. OXAROL [Concomitant]
     Dosage: NOTE: 5-7.5 MCG/WEEK.
     Route: 042
     Dates: start: 20010521, end: 20091026
  4. MICARDIS [Concomitant]
     Route: 048
     Dates: start: 20090128, end: 20091026

REACTIONS (2)
  - CEREBRAL HAEMORRHAGE [None]
  - PLATELET COUNT DECREASED [None]
